FAERS Safety Report 6680496-5 (Version None)
Quarter: 2010Q2

REPORT INFORMATION
  Report Type: 
  Country: None (occurrence: None)
  Receive Date: 20100414
  Receipt Date: 20100405
  Transmission Date: 20101027
  Serious: No
  Sender: FDA-Public Use
  Company Number: US-BIOGENIDEC-2010BI011466

PATIENT
  Age: 58 Year
  Sex: Female

DRUGS (1)
  1. TYSABRI [Suspect]
     Indication: MULTIPLE SCLEROSIS
     Route: 042
     Dates: start: 20080821

REACTIONS (7)
  - BLOOD CHOLESTEROL DECREASED [None]
  - BLOOD PRESSURE DECREASED [None]
  - BODY TEMPERATURE FLUCTUATION [None]
  - FALL [None]
  - FRACTURED COCCYX [None]
  - HEART RATE DECREASED [None]
  - HEART RATE IRREGULAR [None]
